FAERS Safety Report 4397982-3 (Version None)
Quarter: 2004Q3

REPORT INFORMATION
  Report Type: 
  Country: None (occurrence: None)
  Receive Date: 20040715
  Receipt Date: 20031217
  Transmission Date: 20050211
  Serious: Yes (Death, Hospitalization)
  Sender: FDA-Public Use
  Company Number: 200320560US

PATIENT
  Sex: Male
  Weight: 80.8 kg

DRUGS (9)
  1. DOCETAXEL [Suspect]
     Indication: NON-SMALL CELL LUNG CANCER
     Route: 042
     Dates: start: 20030220, end: 20030220
  2. DARVOCET-N 100 [Concomitant]
  3. TRAZODONE HCL [Concomitant]
  4. XANAX [Concomitant]
  5. LASIX [Concomitant]
  6. ZOCOR [Concomitant]
  7. ALBUTEROL [Concomitant]
  8. ATROVENT [Concomitant]
  9. COUMADIN [Concomitant]
     Dates: start: 20010101

REACTIONS (22)
  - ANAEMIA [None]
  - ASTHENIA [None]
  - BLOOD UREA INCREASED [None]
  - CLOSTRIDIAL INFECTION [None]
  - COAGULOPATHY [None]
  - DIZZINESS [None]
  - DYSPHAGIA [None]
  - FALL [None]
  - FEBRILE NEUTROPENIA [None]
  - FEELING ABNORMAL [None]
  - HYPOACUSIS [None]
  - INFECTION [None]
  - INTERNATIONAL NORMALISED RATIO INCREASED [None]
  - MALIGNANT NEOPLASM PROGRESSION [None]
  - MENTAL STATUS CHANGES [None]
  - NEUTROPENIC SEPSIS [None]
  - NON-SMALL CELL LUNG CANCER [None]
  - PAIN [None]
  - PLEURAL EFFUSION [None]
  - TRANSIENT ISCHAEMIC ATTACK [None]
  - URINARY HESITATION [None]
  - VIRAL INFECTION [None]
